FAERS Safety Report 17856538 (Version 1)
Quarter: 2020Q2

REPORT INFORMATION
  Report Type: Report from Study
  Country: IE (occurrence: IE)
  Receive Date: 20200603
  Receipt Date: 20200603
  Transmission Date: 20200714
  Serious: Yes (Hospitalization)
  Sender: FDA-Public Use
  Company Number: IE-JNJFOC-20200530556

PATIENT
  Age: 72 Year
  Sex: Male

DRUGS (10)
  1. ABIRATERONE ACETATE. [Suspect]
     Active Substance: ABIRATERONE ACETATE
     Indication: PROSTATE CANCER METASTATIC
     Route: 048
     Dates: start: 20181219, end: 202005
  2. PREDNISOLONE. [Concomitant]
     Active Substance: PREDNISOLONE
     Route: 050
  3. BISOPROLOL [Concomitant]
     Active Substance: BISOPROLOL
     Route: 050
  4. PANTOPRAZOLE [Concomitant]
     Active Substance: PANTOPRAZOLE
     Route: 050
  5. TRIAPIN [Concomitant]
     Active Substance: FELODIPINE\RAMIPRIL
     Route: 050
  6. ASPRIN [Concomitant]
     Active Substance: ASPIRIN
     Route: 050
  7. RANITIDINE HYDROCHLORIDE. [Concomitant]
     Active Substance: RANITIDINE HYDROCHLORIDE
     Route: 050
  8. LISINOPRIL. [Concomitant]
     Active Substance: LISINOPRIL
     Route: 050
  9. CALCIUM CARBONATE W/CALCIUM GLUCONATE [Concomitant]
     Route: 050
  10. TICAGRELOR. [Concomitant]
     Active Substance: TICAGRELOR
     Route: 050

REACTIONS (2)
  - Myocardial infarction [Unknown]
  - Hypotension [Unknown]

NARRATIVE: CASE EVENT DATE: 20200423
